FAERS Safety Report 17374777 (Version 1)
Quarter: 2020Q1

REPORT INFORMATION
  Report Type: Spontaneous
  Country: IT (occurrence: IT)
  Receive Date: 20200206
  Receipt Date: 20200206
  Transmission Date: 20200409
  Serious: Yes (Other)
  Sender: FDA-Public Use
  Company Number: IT-SA-2020SA026716

PATIENT
  Age: 71 Year
  Sex: Male

DRUGS (9)
  1. LANTUS [Suspect]
     Active Substance: INSULIN GLARGINE
     Indication: DIABETES MELLITUS
     Dosage: 1 DF, QD
     Route: 030
  2. DEURSIL [Concomitant]
     Active Substance: URSODIOL
     Dosage: UNK
     Route: 065
  3. DIBASE [Concomitant]
     Active Substance: CHOLECALCIFEROL
     Dosage: UNK
     Route: 065
  4. PANTOPRAZOLO AUROBINDO [Concomitant]
     Dosage: UNK
     Route: 065
  5. LUVION [CANRENONE] [Concomitant]
     Active Substance: CANRENONE
     Dosage: UNK
     Route: 065
  6. TRAJENTA [Suspect]
     Active Substance: LINAGLIPTIN
     Indication: DIABETES MELLITUS
     Dosage: 1 DF, QD
     Route: 030
  7. PRAVASTATINA ACCO [Concomitant]
     Dosage: UNK
     Route: 065
  8. CARVEDILOLO AUROBINDO [Concomitant]
     Dosage: UNK
     Route: 065
  9. LASIX [Concomitant]
     Active Substance: FUROSEMIDE

REACTIONS (6)
  - Dysarthria [Recovering/Resolving]
  - Drug interaction [Unknown]
  - Facial paresis [Recovering/Resolving]
  - Haematoma [Recovering/Resolving]
  - Hemiparesis [Recovering/Resolving]
  - Hypoglycaemia [Recovering/Resolving]

NARRATIVE: CASE EVENT DATE: 20191230
